FAERS Safety Report 4947488-5 (Version None)
Quarter: 2006Q1

REPORT INFORMATION
  Report Type: 
  Country: None (occurrence: None)
  Receive Date: 20060313
  Receipt Date: 20060301
  Transmission Date: 20060701
  Serious: Yes (Other)
  Sender: FDA-Public Use
  Company Number: 2006030173

PATIENT
  Sex: Female

DRUGS (1)
  1. GEODON [Suspect]
     Indication: ILL-DEFINED DISORDER

REACTIONS (3)
  - DRUG INEFFECTIVE [None]
  - PAIN [None]
  - UNEVALUABLE EVENT [None]
